FAERS Safety Report 17457204 (Version 2)
Quarter: 2020Q1

REPORT INFORMATION
  Report Type: Report from Study
  Country: None (occurrence: US)
  Receive Date: 20200225
  Receipt Date: 20200312
  Transmission Date: 20200409
  Serious: Yes (Hospitalization)
  Sender: FDA-Public Use
  Company Number: US-ABBVIE-19K-163-3201854-00

PATIENT
  Age: 51 Year
  Sex: Female

DRUGS (1)
  1. HUMIRA [Suspect]
     Active Substance: ADALIMUMAB
     Indication: RHEUMATOID ARTHRITIS
     Dosage: CITRATE FREE
     Route: 058
     Dates: start: 201908, end: 2020

REACTIONS (11)
  - Multiple fractures [Unknown]
  - Osteoporosis [Unknown]
  - Spinal fracture [Recovering/Resolving]
  - Pneumonia [Unknown]
  - Cyst [Unknown]
  - Stomatitis [Not Recovered/Not Resolved]
  - Dry mouth [Unknown]
  - Road traffic accident [Recovering/Resolving]
  - Dysphonia [Not Recovered/Not Resolved]
  - Ear infection [Unknown]
  - Sinusitis [Unknown]

NARRATIVE: CASE EVENT DATE: 2019
